FAERS Safety Report 10562555 (Version 2)
Quarter: 2014Q4

REPORT INFORMATION
  Report Type: Spontaneous
  Country: IT (occurrence: IT)
  Receive Date: 20141104
  Receipt Date: 20141113
  Transmission Date: 20150529
  Serious: Yes (Hospitalization, Other)
  Sender: FDA-Public Use
  Company Number: IT-JNJFOC-20141021586

PATIENT
  Age: 13 Year
  Sex: Female
  Weight: 33.4 kg

DRUGS (6)
  1. FOLINA [Concomitant]
     Active Substance: FOLIC ACID
     Route: 065
  2. REMICADE [Suspect]
     Active Substance: INFLIXIMAB
     Indication: CROHN^S DISEASE
     Route: 042
     Dates: start: 20140508, end: 20140929
  3. VITAMIN D [Concomitant]
     Active Substance: CHOLECALCIFEROL
     Route: 065
  4. CALCIUM [Concomitant]
     Active Substance: CALCIUM
     Route: 065
  5. FERROUS DEXTRAN [Concomitant]
     Indication: ANAEMIA
     Route: 030
     Dates: start: 20140929, end: 20140929
  6. REMICADE [Suspect]
     Active Substance: INFLIXIMAB
     Indication: CROHN^S DISEASE
     Route: 042
     Dates: start: 20140508, end: 20140929

REACTIONS (4)
  - Anaemia [Recovering/Resolving]
  - Polyserositis [Recovering/Resolving]
  - Pyrexia [Recovering/Resolving]
  - Lupus-like syndrome [Recovering/Resolving]

NARRATIVE: CASE EVENT DATE: 201410
